FAERS Safety Report 10776742 (Version 1)
Quarter: 2015Q1

REPORT INFORMATION
  Report Type: Spontaneous
  Country: PT (occurrence: PT)
  Receive Date: 20150209
  Receipt Date: 20150209
  Transmission Date: 20150721
  Serious: Yes (Other)
  Sender: FDA-Public Use
  Company Number: PHHY2015PT012514

PATIENT
  Age: 74 Year
  Sex: Female

DRUGS (4)
  1. AMIKACIN [Concomitant]
     Active Substance: AMIKACIN
     Indication: PSEUDOMONAS TEST POSITIVE
     Route: 065
  2. VANCOMYCIN [Suspect]
     Active Substance: VANCOMYCIN
     Indication: STAPHYLOCOCCUS TEST POSITIVE
  3. AMIKACIN [Concomitant]
     Active Substance: AMIKACIN
     Indication: STAPHYLOCOCCUS TEST POSITIVE
  4. VANCOMYCIN [Suspect]
     Active Substance: VANCOMYCIN
     Indication: PSEUDOMONAS TEST POSITIVE
     Route: 065

REACTIONS (3)
  - Staphylococcal infection [Unknown]
  - Enterococcal infection [Unknown]
  - Wound infection pseudomonas [Unknown]

NARRATIVE: CASE EVENT DATE: 201305
